FAERS Safety Report 6368363-8 (Version None)
Quarter: 2009Q3

REPORT INFORMATION
  Report Type: 
  Country: None (occurrence: None)
  Receive Date: 20090916
  Receipt Date: 20090902
  Transmission Date: 20100115
  Serious: Yes (Other)
  Sender: FDA-Public Use
  Company Number: 8051455

PATIENT
  Sex: Male
  Weight: 78.1 kg

DRUGS (11)
  1. CIMZIA [Suspect]
     Indication: CROHN'S DISEASE
     Dosage: 400 MG SC
     Route: 058
     Dates: start: 20080821
  2. ASPIRIN [Concomitant]
  3. NEXIUM [Concomitant]
  4. OPTIVITAMIN [Concomitant]
  5. LEVBID [Concomitant]
  6. UROXATRAL [Concomitant]
  7. METOPROLOL [Concomitant]
  8. FINASTERIDE [Concomitant]
  9. CALCIUM D [Concomitant]
  10. MIRALAX [Concomitant]
  11. ZOMETA [Concomitant]

REACTIONS (2)
  - METASTASES TO BONE [None]
  - PROSTATE CANCER [None]
